FAERS Safety Report 5700268-5 (Version None)
Quarter: 2008Q2

REPORT INFORMATION
  Report Type: 
  Country: None (occurrence: None)
  Receive Date: 20080408
  Receipt Date: 20080408
  Transmission Date: 20081010
  Serious: Yes (Hospitalization)
  Sender: FDA-Public Use
  Company Number: None

PATIENT
  Age: 66 Year
  Sex: Female
  Weight: 90 kg

DRUGS (1)
  1. ANTICOAGULANT ETHYLENEDIAMINE TETRAACETIC ACID (EDTA) [Suspect]
     Indication: CHELATION THERAPY
     Dosage: 1.5 GRAMS  IV DRIP
     Route: 041
     Dates: start: 20080325, end: 20080325

REACTIONS (8)
  - BACK PAIN [None]
  - BODY TEMPERATURE INCREASED [None]
  - CARDIAC DISORDER [None]
  - CHILLS [None]
  - DIZZINESS [None]
  - HYPERTENSION [None]
  - INFUSION RELATED REACTION [None]
  - NAUSEA [None]
